FAERS Safety Report 13910211 (Version 3)
Quarter: 2017Q4

REPORT INFORMATION
  Report Type: Report from Study
  Country: US (occurrence: US)
  Receive Date: 20170828
  Receipt Date: 20171102
  Transmission Date: 20180320
  Serious: Yes (Death, Hospitalization, Other)
  Sender: FDA-Public Use
  Company Number: US-JNJFOC-20170822296

PATIENT
  Age: 67 Year
  Sex: Female

DRUGS (1)
  1. IMBRUVICA [Suspect]
     Active Substance: IBRUTINIB
     Indication: MANTLE CELL LYMPHOMA
     Route: 048
     Dates: start: 20170725, end: 20170905

REACTIONS (3)
  - Haemoglobin decreased [Unknown]
  - Tumour lysis syndrome [Unknown]
  - Disease progression [Fatal]

NARRATIVE: CASE EVENT DATE: 20170905
